FAERS Safety Report 10038629 (Version 1)
Quarter: 2014Q1

REPORT INFORMATION
  Report Type: Spontaneous
  Country: US (occurrence: None)
  Receive Date: 20140306
  Receipt Date: 20140306
  Transmission Date: 20141002
  Serious: Yes (Other)
  Sender: FDA-Public Use
  Company Number: 163-21880-13011791

PATIENT
  Age: 82 Year
  Sex: Female
  Weight: 133.99 kg

DRUGS (20)
  1. ASPIRIN (ACETYLSALICYLIC ACID) [Concomitant]
  2. VITAMIN C (ASCORBIC ACID) [Concomitant]
  3. FISH OIL [Concomitant]
  4. DEXAMETHASONE [Concomitant]
  5. FUROSEMIDE [Concomitant]
  6. POTASSIUM CHLORIDE [Concomitant]
  7. SIMVASTATIN [Concomitant]
  8. XARELTO (RIVAROXABAN) [Concomitant]
  9. PROTONIX [Concomitant]
  10. GLUCOSAMINE CHONDROITIN [Concomitant]
  11. VITAMIN B12 (CYANOCOBALAMIN) [Concomitant]
  12. MVI [Concomitant]
  13. REVLIMID [Suspect]
     Indication: PLASMA CELL MYELOMA
     Route: 048
     Dates: start: 20120222
  14. FLUTICASONE [Concomitant]
  15. TRAMADOL [Concomitant]
  16. DIGOXIN [Concomitant]
  17. HCTZ (HYDROCHLOROTHIAZIDE) [Concomitant]
  18. METOPROLOL [Concomitant]
  19. METANX [Concomitant]
  20. PLAVIX (CLOPIDOGREL SULFATE) [Concomitant]

REACTIONS (9)
  - Glossodynia [None]
  - Sinusitis [None]
  - Bronchitis [None]
  - Insomnia [None]
  - Fatigue [None]
  - Asthenia [None]
  - Pain [None]
  - Asthenia [None]
  - Back pain [None]
